FAERS Safety Report 5600710-4 (Version None)
Quarter: 2008Q1

REPORT INFORMATION
  Report Type: 
  Country: None (occurrence: None)
  Receive Date: 20080123
  Receipt Date: 20080121
  Transmission Date: 20080703
  Serious: Yes (Hospitalization, Other)
  Sender: FDA-Public Use
  Company Number: US-ABBOTT-08P-163-0433023-00

PATIENT
  Sex: Female
  Weight: 54.026 kg

DRUGS (9)
  1. HUMIRA [Suspect]
     Indication: CROHN'S DISEASE
     Route: 058
     Dates: end: 20080103
  2. HUMIRA [Suspect]
     Route: 058
     Dates: start: 20071203, end: 20071203
  3. HUMIRA [Suspect]
     Route: 058
     Dates: start: 20071217, end: 20071217
  4. HUMIRA [Suspect]
     Route: 058
     Dates: start: 20080107
  5. RABEPRAZOLE SODIUM [Concomitant]
     Indication: DRUG USE FOR UNKNOWN INDICATION
  6. FLUOXETINE HYDROCHLORIDE [Concomitant]
     Indication: DRUG USE FOR UNKNOWN INDICATION
  7. MESALAMINE [Concomitant]
     Indication: DRUG USE FOR UNKNOWN INDICATION
  8. RIFAXIMIN [Concomitant]
     Indication: DRUG USE FOR UNKNOWN INDICATION
  9. BIRTH CONTROL [Concomitant]
     Indication: DRUG USE FOR UNKNOWN INDICATION

REACTIONS (3)
  - FATIGUE [None]
  - HAEMATEMESIS [None]
  - STOMACH MASS [None]
